FAERS Safety Report 5150423-0 (Version None)
Quarter: 2006Q4

REPORT INFORMATION
  Report Type: 
  Country: None (occurrence: None)
  Receive Date: 20061114
  Receipt Date: 20061103
  Transmission Date: 20070319
  Serious: Yes (Hospitalization)
  Sender: FDA-Public Use
  Company Number: GBWYE448307NOV06

PATIENT
  Sex: Male

DRUGS (5)
  1. ENBREL [Suspect]
     Indication: JUVENILE ARTHRITIS
     Route: 058
     Dates: start: 20010907
  2. PAMIDRONATE DISODIUM [Concomitant]
  3. CALCIUM WITH VITAMIN D [Concomitant]
  4. INDOMETHACIN [Concomitant]
  5. PREDNISOLONE [Concomitant]

REACTIONS (2)
  - ENCEPHALITIS [None]
  - EPSTEIN-BARR VIRUS INFECTION [None]
